FAERS Safety Report 20891277 (Version 1)
Quarter: 2022Q2

REPORT INFORMATION
  Report Type: Spontaneous
  Country: US (occurrence: US)
  Receive Date: 20220530
  Receipt Date: 20220530
  Transmission Date: 20220721
  Serious: Yes (Death, Other)
  Sender: FDA-Public Use
  Company Number: US-PFIZER INC-202200739212

PATIENT
  Age: 49 Year
  Sex: Male

DRUGS (4)
  1. CEFEPIME HYDROCHLORIDE [Suspect]
     Active Substance: CEFEPIME HYDROCHLORIDE
     Indication: Strongyloidiasis
     Dosage: UNK
  2. VANCOMYCIN HYDROCHLORIDE [Suspect]
     Active Substance: VANCOMYCIN HYDROCHLORIDE
     Indication: Strongyloidiasis
     Dosage: UNK
  3. AMPICILLIN [Suspect]
     Active Substance: AMPICILLIN
     Indication: Strongyloidiasis
     Dosage: UNK
  4. ACYCLOVIR [Suspect]
     Active Substance: ACYCLOVIR
     Indication: Strongyloidiasis
     Dosage: UNK

REACTIONS (3)
  - Cardiac arrest [Fatal]
  - Drug ineffective [Unknown]
  - Off label use [Unknown]
